FAERS Safety Report 7065184-8 (Version None)
Quarter: 2010Q4

REPORT INFORMATION
  Report Type: 
  Country: None (occurrence: None)
  Receive Date: 20101027
  Receipt Date: 19950214
  Transmission Date: 20110411
  Serious: Yes (Death, Hospitalization)
  Sender: FDA-Public Use
  Company Number: US-ROCHE-950200265001

PATIENT
  Age: 4 Year
  Sex: Female

DRUGS (1)
  1. ACCUTANE [Suspect]
     Indication: NEUROBLASTOMA
     Route: 065
     Dates: start: 19940101

REACTIONS (3)
  - HYPERCALCAEMIA [None]
  - NEUROBLASTOMA [None]
  - SKIN EXFOLIATION [None]
